FAERS Safety Report 19964573 (Version 1)
Quarter: 2021Q4

REPORT INFORMATION
  Report Type: Other
  Country: PL (occurrence: PL)
  Receive Date: 20211018
  Receipt Date: 20211018
  Transmission Date: 20220303
  Serious: Yes (Other)
  Sender: FDA-Public Use
  Company Number: PL-MERCK HEALTHCARE KGAA-9270978

PATIENT
  Age: 55 Year
  Sex: Female
  Weight: 75 kg

DRUGS (3)
  1. METFORMIN [Suspect]
     Active Substance: METFORMIN HYDROCHLORIDE
     Indication: Diabetes mellitus
  2. AMLODIPINE [Concomitant]
     Active Substance: AMLODIPINE BESYLATE
     Indication: Hypertension
  3. GLICLAZIDE [Concomitant]
     Active Substance: GLICLAZIDE
     Indication: Diabetes mellitus

REACTIONS (6)
  - Renal impairment [Unknown]
  - Urinary tract infection [Unknown]
  - Diabetes mellitus inadequate control [Unknown]
  - Lipids increased [Unknown]
  - Blood pressure increased [Recovering/Resolving]
  - Weight increased [Recovering/Resolving]
